FAERS Safety Report 8139694-6 (Version None)
Quarter: 2012Q1

REPORT INFORMATION
  Report Type: 
  Country: None (occurrence: None)
  Receive Date: 20120215
  Receipt Date: 20120210
  Transmission Date: 20120608
  Serious: Yes (Death, Hospitalization)
  Sender: FDA-Public Use
  Company Number: PHHY2012AR012433

PATIENT
  Sex: Female

DRUGS (1)
  1. DIOVAN [Suspect]
     Indication: BLOOD PRESSURE
     Dosage: 160 MG, BID
     Dates: start: 20100101

REACTIONS (3)
  - RESPIRATORY FAILURE [None]
  - CARDIOGENIC SHOCK [None]
  - VENTRICULAR ARRHYTHMIA [None]
